FAERS Safety Report 20086205 (Version 1)
Quarter: 2021Q4

REPORT INFORMATION
  Report Type: Spontaneous
  Country: US (occurrence: US)
  Receive Date: 20211118
  Receipt Date: 20211118
  Transmission Date: 20220303
  Serious: Yes (Hospitalization)
  Sender: FDA-Public Use
  Company Number: US-ADAMAS PHARMA, LLC-2021ADA02722

PATIENT
  Age: 44 Year
  Sex: Female
  Weight: 40.816 kg

DRUGS (5)
  1. GOCOVRI [Suspect]
     Active Substance: AMANTADINE
     Indication: Dyskinesia
     Dosage: 137 MG, 1X/DAY
     Route: 048
     Dates: start: 202109, end: 20210911
  2. GOCOVRI [Suspect]
     Active Substance: AMANTADINE
     Indication: On and off phenomenon
  3. SINEMET [Suspect]
     Active Substance: CARBIDOPA\LEVODOPA
  4. CARBIDOPA\LEVODOPA [Suspect]
     Active Substance: CARBIDOPA\LEVODOPA
  5. UNSPECIFIED INGREDIENT [Suspect]
     Active Substance: UNSPECIFIED INGREDIENT

REACTIONS (2)
  - Substance-induced psychotic disorder [Recovered/Resolved]
  - Toxic encephalopathy [Recovered/Resolved]

NARRATIVE: CASE EVENT DATE: 20210901
